FAERS Safety Report 18398436 (Version 1)
Quarter: 2020Q4

REPORT INFORMATION
  Report Type: Spontaneous
  Country: RU (occurrence: RU)
  Receive Date: 20201019
  Receipt Date: 20201019
  Transmission Date: 20210114
  Serious: Yes (Other)
  Sender: FDA-Public Use
  Company Number: RU-ROCHE-2696417

PATIENT
  Sex: Male

DRUGS (3)
  1. ATEZOLIZUMAB. [Suspect]
     Active Substance: ATEZOLIZUMAB
     Indication: NEOPLASM MALIGNANT
     Route: 041
  2. VINFLUNINE [Suspect]
     Active Substance: VINFLUNINE
     Indication: NEOPLASM MALIGNANT
     Route: 065
  3. GEMCITABINE. [Suspect]
     Active Substance: GEMCITABINE
     Indication: NEOPLASM MALIGNANT
     Route: 065

REACTIONS (4)
  - Pyoderma [Unknown]
  - Glossitis [Unknown]
  - Neuropathy peripheral [Unknown]
  - Leukopenia [Unknown]
